FAERS Safety Report 9530665 (Version 1)
Quarter: 2013Q3

REPORT INFORMATION
  Report Type: Spontaneous
  Country: CN (occurrence: CN)
  Receive Date: 20130918
  Receipt Date: 20130918
  Transmission Date: 20140515
  Serious: Yes (Other)
  Sender: FDA-Public Use
  Company Number: CN-ROCHE-1272888

PATIENT
  Sex: Female
  Weight: 51 kg

DRUGS (1)
  1. HERCEPTIN [Suspect]
     Indication: BREAST CANCER IN SITU
     Route: 042
     Dates: start: 20121108, end: 20121108

REACTIONS (1)
  - Anaphylactic shock [Recovered/Resolved with Sequelae]
